FAERS Safety Report 7824379-3 (Version None)
Quarter: 2011Q4

REPORT INFORMATION
  Report Type: 
  Country: None (occurrence: None)
  Receive Date: 20111019
  Receipt Date: 20110915
  Transmission Date: 20120403
  Serious: Yes (Other)
  Sender: FDA-Public Use
  Company Number: JP-BRISTOL-MYERS SQUIBB COMPANY-15968407

PATIENT
  Age: 75 Year
  Sex: Female

DRUGS (4)
  1. LOXONIN [Concomitant]
     Indication: RHEUMATOID ARTHRITIS
  2. PREDNISOLONE [Concomitant]
     Dates: start: 20101207
  3. ORENCIA [Suspect]
     Dosage: 5TH INF ON 05JUL2011
     Route: 042
     Dates: start: 20110329
  4. METHOTREXATE [Suspect]
     Route: 048
     Dates: start: 20101221, end: 20110705

REACTIONS (1)
  - INTERSTITIAL LUNG DISEASE [None]
